FAERS Safety Report 19433049 (Version 1)
Quarter: 2021Q2

REPORT INFORMATION
  Report Type: Spontaneous
  Country: US (occurrence: US)
  Receive Date: 20210618
  Receipt Date: 20210618
  Transmission Date: 20210717
  Serious: Yes (Other)
  Sender: FDA-Public Use
  Company Number: US-BRISTOL-MYERS SQUIBB COMPANY-BMS-2021-057257

PATIENT
  Age: 68 Year
  Sex: Female

DRUGS (2)
  1. BIOTIN [Suspect]
     Active Substance: BIOTIN
     Indication: PRODUCT USED FOR UNKNOWN INDICATION
     Route: 065
  2. NIVOLUMAB [Suspect]
     Active Substance: NIVOLUMAB
     Indication: LUNG ADENOCARCINOMA
     Dosage: 360 MILLIGRAM
     Route: 042

REACTIONS (2)
  - Off label use [Unknown]
  - Hypothyroidism [Recovering/Resolving]
